FAERS Safety Report 26121214 (Version 1)
Quarter: 2025Q4

REPORT INFORMATION
  Report Type: Spontaneous
  Country: US (occurrence: None)
  Receive Date: 20251203
  Receipt Date: 20251203
  Transmission Date: 20260117
  Serious: Yes (Hospitalization, Other)
  Sender: FDA-CTU
  Company Number: None

PATIENT
  Age: 34 Year
  Sex: Female
  Weight: 63.5 kg

DRUGS (10)
  1. OCREVUS [Suspect]
     Active Substance: OCRELIZUMAB
     Indication: Multiple sclerosis
  2. Wilexa Inhub powder for inhalation [Concomitant]
  3. VITAMIN D2 [Concomitant]
     Active Substance: ERGOCALCIFEROL
  4. VITAMINS [Concomitant]
     Active Substance: VITAMINS
  5. Albuterol sulfate HFA aerosol inhaler [Concomitant]
  6. OMEPRAZOLE [Concomitant]
     Active Substance: OMEPRAZOLE
  7. Estriol vaginal cream 0.01% [Concomitant]
  8. AMPICILLIN [Concomitant]
     Active Substance: AMPICILLIN
  9. CYCLOBENZAPRINE [Concomitant]
     Active Substance: CYCLOBENZAPRINE
  10. OXYCODONE [Concomitant]
     Active Substance: OXYCODONE

REACTIONS (2)
  - Amniotic cavity infection [None]
  - Exposure during pregnancy [None]

NARRATIVE: CASE EVENT DATE: 20251024
